FAERS Safety Report 22966086 (Version 2)
Quarter: 2023Q4

REPORT INFORMATION
  Report Type: Report from Study
  Country: IT (occurrence: IT)
  Receive Date: 20230921
  Receipt Date: 20231017
  Transmission Date: 20240110
  Serious: Yes (Hospitalization, Other)
  Sender: FDA-Public Use
  Company Number: None

PATIENT
  Age: 27 Year
  Sex: Male

DRUGS (4)
  1. LINEZOLID [Suspect]
     Active Substance: LINEZOLID
     Indication: Pulmonary tuberculosis
     Dosage: 1200 MG, 1X/DAY
     Route: 048
     Dates: start: 20220902, end: 20221231
  2. OMEPRAZOLE SODIUM [Concomitant]
     Active Substance: OMEPRAZOLE SODIUM
     Indication: Abdominal pain upper
     Dosage: 20 MG
     Route: 048
  3. SIRTURO [Concomitant]
     Active Substance: BEDAQUILINE FUMARATE
     Indication: Pulmonary tuberculosis
     Dosage: 400 MG
     Route: 048
     Dates: start: 20220902, end: 20230418
  4. PRETOMANID [Concomitant]
     Active Substance: PRETOMANID
     Indication: Pulmonary tuberculosis
     Dosage: 200 MG, 1X/DAY
     Route: 048
     Dates: start: 20230418, end: 20230902

REACTIONS (8)
  - Myelosuppression [Recovered/Resolved]
  - Small fibre neuropathy [Recovering/Resolving]
  - Anaemia [Recovering/Resolving]
  - Tendon disorder [Unknown]
  - Malaise [Recovered/Resolved]
  - Weight decreased [Recovering/Resolving]
  - Leukopenia [Recovering/Resolving]
  - Off label use [Unknown]

NARRATIVE: CASE EVENT DATE: 20220902
